FAERS Safety Report 20301599 (Version 3)
Quarter: 2022Q1

REPORT INFORMATION
  Report Type: Spontaneous
  Country: CN (occurrence: CN)
  Receive Date: 20220105
  Receipt Date: 20220228
  Transmission Date: 20220423
  Serious: Yes (Death, Life-Threatening, Disabling)
  Sender: FDA-Public Use
  Company Number: CN-PFIZER INC-202101883122

PATIENT
  Age: 89 Year
  Sex: Male
  Weight: 55 kg

DRUGS (4)
  1. CEFOPERAZONE SODIUM\SULBACTAM SODIUM [Suspect]
     Active Substance: CEFOPERAZONE SODIUM\SULBACTAM SODIUM
     Indication: Anti-infective therapy
     Dosage: 3 G, 3X/DAY
     Route: 041
     Dates: start: 20211105, end: 20211118
  2. CEFOPERAZONE SODIUM\SULBACTAM SODIUM [Suspect]
     Active Substance: CEFOPERAZONE SODIUM\SULBACTAM SODIUM
     Dosage: 3 G, 3X/DAY
     Route: 041
     Dates: start: 20211204, end: 20211215
  3. CEFOPERAZONE SODIUM\SULBACTAM SODIUM [Suspect]
     Active Substance: CEFOPERAZONE SODIUM\SULBACTAM SODIUM
     Dosage: 3 G, 2X/DAY
     Route: 041
     Dates: start: 20211216, end: 20211220
  4. TIGECYCLINE [Suspect]
     Active Substance: TIGECYCLINE
     Indication: Anti-infective therapy
     Dosage: 50 MG, 2X/DAY
     Route: 041
     Dates: start: 20211130, end: 20211218

REACTIONS (4)
  - Pneumonia [Fatal]
  - Condition aggravated [Fatal]
  - Platelet count decreased [Recovering/Resolving]
  - Off label use [Unknown]

NARRATIVE: CASE EVENT DATE: 20211105
